FAERS Safety Report 14366054 (Version 1)
Quarter: 2018Q1

REPORT INFORMATION
  Report Type: Spontaneous
  Country: US (occurrence: US)
  Receive Date: 20180109
  Receipt Date: 20180109
  Transmission Date: 20180509
  Serious: Yes (Other)
  Sender: FDA-Public Use
  Company Number: US-ROCHE-2028552

PATIENT
  Age: 62 Year
  Sex: Female

DRUGS (1)
  1. OCREVUS [Suspect]
     Active Substance: OCRELIZUMAB
     Indication: MULTIPLE SCLEROSIS
     Dosage: INITIAL DOSE THEN ONCE EVERY SIX MONTHS
     Route: 042
     Dates: start: 20171116

REACTIONS (8)
  - Rhinorrhoea [Recovered/Resolved]
  - Blood pressure fluctuation [Recovered/Resolved]
  - Respiratory tract congestion [Recovered/Resolved]
  - Administration site rash [Recovered/Resolved]
  - Flushing [Recovered/Resolved]
  - Rash [Recovered/Resolved]
  - Cough [Recovered/Resolved]
  - Dyspnoea [Recovered/Resolved]

NARRATIVE: CASE EVENT DATE: 20171116
